FAERS Safety Report 9127793 (Version 7)
Quarter: 2016Q1

REPORT INFORMATION
  Report Type: Spontaneous
  Country: US (occurrence: US)
  Receive Date: 20130228
  Receipt Date: 20160215
  Transmission Date: 20160526
  Serious: Yes (Other)
  Sender: FDA-Public Use
  Company Number: US-GLAXOSMITHKLINE-A0999740A

PATIENT
  Sex: Male

DRUGS (5)
  1. LAMOTRIGINE. [Suspect]
     Active Substance: LAMOTRIGINE
     Indication: SEIZURE
     Dosage: 500 MG, QD
     Route: 048
     Dates: start: 2008
  2. LAMICTAL [Suspect]
     Active Substance: LAMOTRIGINE
     Indication: PRODUCT USED FOR UNKNOWN INDICATION
     Dosage: 25 MG, U
  3. LAMICTAL [Suspect]
     Active Substance: LAMOTRIGINE
     Dosage: 500 MG, QD
  4. RANITIDINE [Concomitant]
     Active Substance: RANITIDINE\RANITIDINE HYDROCHLORIDE
  5. NASALINE PLUS [Concomitant]

REACTIONS (14)
  - Renal pain [Unknown]
  - Angina pectoris [Unknown]
  - Confusional state [Not Recovered/Not Resolved]
  - Exposure to chemical pollution [Recovering/Resolving]
  - Hypertension [Recovering/Resolving]
  - Cerebral disorder [Recovering/Resolving]
  - Emergency care examination [Unknown]
  - Blood test abnormal [Unknown]
  - Abdominal pain [Unknown]
  - Gastrointestinal pain [Unknown]
  - Headache [Recovering/Resolving]
  - Product quality issue [Unknown]
  - Speech disorder [Not Recovered/Not Resolved]
  - Neck pain [Recovering/Resolving]

NARRATIVE: CASE EVENT DATE: 2008
